FAERS Safety Report 6363110-8 (Version None)
Quarter: 2009Q3

REPORT INFORMATION
  Report Type: 
  Country: None (occurrence: None)
  Receive Date: 20090919
  Receipt Date: 20090618
  Transmission Date: 20100115
  Serious: No
  Sender: FDA-Public Use
  Company Number: US-ABBOTT-09P-163-0580706-00

PATIENT
  Sex: Female
  Weight: 42.676 kg

DRUGS (3)
  1. HUMIRA [Suspect]
     Indication: CROHN'S DISEASE
     Dosage: (80 MG DAY 1)
     Dates: start: 20090603
  2. HUMIRA [Suspect]
     Dosage: (80MG DAY 2)
  3. NEXIUM [Concomitant]
     Indication: DRUG USE FOR UNKNOWN INDICATION

REACTIONS (2)
  - CONSTIPATION [None]
  - NAUSEA [None]
